FAERS Safety Report 9118752 (Version 2)
Quarter: 2013Q2

REPORT INFORMATION
  Report Type: Spontaneous
  Country: US (occurrence: None)
  Receive Date: 20130130
  Receipt Date: 20130415
  Transmission Date: 20140414
  Serious: Yes (Other)
  Sender: FDA-Public Use
  Company Number: ACO_33884_2013

PATIENT
  Age: 52 Year
  Sex: Female
  Weight: 113.4 kg

DRUGS (6)
  1. AMPYRA [Suspect]
     Indication: GAIT DISTURBANCE
     Route: 048
     Dates: start: 20120906, end: 20121101
  2. TIZANDINE (TIZANDINE HYDROCHLORIDE) [Suspect]
     Indication: MUSCLE SPASTICITY
     Dosage: 4 MG, 1-2 TABLETS QD, MAX 5/DAY, ORAL
     Route: 048
     Dates: start: 2005
  3. RITALIN [Suspect]
     Indication: FATIGUE
     Dosage: 10 MG, ONE TO TWO PM
     Dates: start: 201212
  4. FLUOXETINE (FLUOXETINE HYDROCHLORIDE) [Concomitant]
  5. VITAMIN D (ERGOCALCIFEROL) [Concomitant]
  6. LORAZEPAM (LORAZEPAM) [Concomitant]

REACTIONS (8)
  - Tremor [None]
  - Fall [None]
  - Somnolence [None]
  - Dizziness [None]
  - Inappropriate schedule of drug administration [None]
  - Ankle fracture [None]
  - Balance disorder [None]
  - Therapeutic response unexpected [None]
